FAERS Safety Report 8843107 (Version 1)
Quarter: 2012Q4

REPORT INFORMATION
  Report Type: 
  Country: DE (occurrence: DE)
  Receive Date: 20121016
  Receipt Date: 20121016
  Transmission Date: 20130627
  Serious: Yes (Hospitalization, Other)
  Sender: FDA-Public Use
  Company Number: PHHY2012DE090238

PATIENT
  Age: 56 Year
  Sex: Male

DRUGS (6)
  1. SANDIMMUNE NEORAL [Suspect]
     Indication: PROPHYLAXIS AGAINST TRANSPLANT REJECTION
     Dosage: 200 mg/day
     Route: 048
  2. CELLCEPT [Concomitant]
     Indication: PROPHYLAXIS AGAINST TRANSPLANT REJECTION
     Dosage: 500 mg, BID
     Route: 048
  3. RAMIPRIL [Concomitant]
     Dosage: 5 mg, BID
     Route: 048
  4. PRAVASTATIN [Concomitant]
     Dosage: 5 mg, QD
     Route: 048
  5. ACIMETHIN [Concomitant]
     Dosage: 500 mg, BID
     Route: 048
  6. DECORTIN [Concomitant]
     Dosage: 7.5 mg/day
     Route: 048

REACTIONS (8)
  - Schizophrenia [Not Recovered/Not Resolved]
  - Enterovesical fistula [Not Recovered/Not Resolved]
  - Urinary tract infection [Not Recovered/Not Resolved]
  - Peritonitis [Recovered/Resolved]
  - Kidney transplant rejection [Unknown]
  - Appendicitis perforated [Recovered/Resolved]
  - Escherichia infection [Not Recovered/Not Resolved]
  - Blood creatinine increased [Unknown]
